FAERS Safety Report 9699067 (Version 1)
Quarter: 2013Q4

REPORT INFORMATION
  Report Type: Spontaneous
  Country: US (occurrence: None)
  Receive Date: 20131106
  Receipt Date: 20131106
  Transmission Date: 20140711
  Serious: Yes (Hospitalization)
  Sender: FDA-Public Use
  Company Number: 2013038582

PATIENT
  Age: 89 Year
  Sex: Female
  Weight: 60.33 kg

DRUGS (22)
  1. HIZENTRA (IMMUNOGLOBULIN HUMAN NORMAL) [Suspect]
     Indication: IMMUNODEFICIENCY COMMON VARIABLE
     Route: 058
     Dates: start: 20131004
  2. LACTULOSE (LACTULOSE) [Concomitant]
  3. POTASSIUM CHLORIDE (POTASSIUM CHLORIDE) [Concomitant]
  4. ISOSORBIDE (ISOSORBIDE) [Concomitant]
  5. MIRALAX [Concomitant]
  6. COLACE (DOCUSATE SODIUIM) [Concomitant]
  7. FOLIC ACID (FOLIC ACID) [Concomitant]
  8. LASIX (FUROSEMIDE) [Concomitant]
  9. LISINOPRIL (LISINOPRIL) [Concomitant]
  10. METOPROLOL (METOPROLOL) [Concomitant]
  11. OCUVATE LUTEIN (OCUVATE LUTEIN) [Concomitant]
  12. MUPIROCIN (MUPIROCIN) [Concomitant]
  13. SERTRALINE (SERTRALINE) [Concomitant]
  14. COUMADIN (WARFARIN SODIUM) [Concomitant]
  15. VERAPAMIL (VERAPAMIL) [Concomitant]
  16. ASPIRIN (ACETYLSALICYLIC ACID) [Concomitant]
  17. LEVOTHROID (LEVOTHYROXINE SODIUM) [Concomitant]
  18. DUONEB (COMBIVENT) [Concomitant]
  19. VITAMIN C [Concomitant]
  20. CENTRUM (CENTRUM) [Concomitant]
  21. CALCIUM LACTATE (CALCIUM LACTATE) [Concomitant]
  22. EPI-PEN (EPINEPHRINE HYDROCHLORIDE) [Concomitant]

REACTIONS (3)
  - Dyspnoea [None]
  - Thrombosis [None]
  - Pulmonary oedema [None]
